FAERS Safety Report 21371521 (Version 1)
Quarter: 2022Q3

REPORT INFORMATION
  Report Type: Spontaneous
  Country: CL (occurrence: CL)
  Receive Date: 20220923
  Receipt Date: 20220923
  Transmission Date: 20221027
  Serious: Yes (Other)
  Sender: FDA-Public Use
  Company Number: CL-BAXTER-2022BAX020420

PATIENT
  Age: 28 Year
  Sex: Female

DRUGS (4)
  1. DOXORUBICIN [Suspect]
     Active Substance: DOXORUBICIN
     Indication: Ovarian cancer
     Dosage: LIPOSOMAL (64 MG,1 IN 1 CYCLICAL), SOLUTION FOR INFUSION, 2 CYCLES
     Route: 065
     Dates: start: 20191004
  2. CARBOPLATIN [Concomitant]
     Active Substance: CARBOPLATIN
     Dosage: 3 CYCLES
     Route: 065
  3. GEMCITABINE [Concomitant]
     Active Substance: GEMCITABINE
     Indication: Ovarian cancer
     Dosage: 990 MG, 2 CYCLES, SECOND LINE CHEMOTHERAPY
     Route: 065
     Dates: start: 201907
  4. PACLITAXEL [Concomitant]
     Active Substance: PACLITAXEL
     Dosage: PACLITAXEL 670 PLUS PACLITAXEL 293 MG, 3 CYCLES
     Route: 065

REACTIONS (1)
  - Pelvic venous thrombosis [Unknown]

NARRATIVE: CASE EVENT DATE: 20190101
